FAERS Safety Report 25063128 (Version 1)
Quarter: 2025Q1

REPORT INFORMATION
  Report Type: Report from Study
  Country: US (occurrence: US)
  Receive Date: 20250311
  Receipt Date: 20250311
  Transmission Date: 20250409
  Serious: No
  Sender: SUNOVION
  Company Number: US-SMPA-2025SPA001707AA

PATIENT

DRUGS (10)
  1. ORGOVYX [Suspect]
     Active Substance: RELUGOLIX
     Indication: Prostate cancer
     Dosage: 360 MG, SINGLE
     Route: 048
     Dates: start: 20221201, end: 20221201
  2. ORGOVYX [Suspect]
     Active Substance: RELUGOLIX
     Dosage: 120 MG, QD
     Route: 048
     Dates: start: 20221202
  3. CORTISONE [Concomitant]
     Active Substance: CORTISONE
     Route: 065
  4. MOTRIN IB [Concomitant]
     Active Substance: IBUPROFEN
     Route: 048
  5. XTANDI [Concomitant]
     Active Substance: ENZALUTAMIDE
     Route: 048
  6. TIZANIDINE HYDROCHLORIDE [Concomitant]
     Active Substance: TIZANIDINE HYDROCHLORIDE
     Route: 048
  7. GABAPENTIN [Concomitant]
     Active Substance: GABAPENTIN
     Route: 048
  8. Flexall [Concomitant]
     Route: 065
  9. FIRMAGON [Concomitant]
     Active Substance: DEGARELIX ACETATE
     Route: 058
  10. CYCLOBENZAPRINE HYDROCHLORIDE [Concomitant]
     Active Substance: CYCLOBENZAPRINE HYDROCHLORIDE
     Route: 048

REACTIONS (3)
  - Muscle spasms [Unknown]
  - Peripheral swelling [Unknown]
  - Arthralgia [Unknown]
